FAERS Safety Report 23111790 (Version 1)
Quarter: 2023Q4

REPORT INFORMATION
  Report Type: Spontaneous
  Country: US (occurrence: US)
  Receive Date: 20231026
  Receipt Date: 20231026
  Transmission Date: 20240109
  Serious: No
  Sender: FDA-Public Use
  Company Number: US-BIOXCEL THERAPEUTICS, INC.-2023BIX00025

PATIENT
  Age: 37 Year
  Sex: Female

DRUGS (2)
  1. IGALMI [Suspect]
     Active Substance: DEXMEDETOMIDINE
     Indication: Agitation
     Dosage: 180 ?G, AS NEEDED
  2. ZYPREXA [Concomitant]
     Active Substance: OLANZAPINE
     Dosage: 15 MG, 2X/DAY
     Route: 048

REACTIONS (4)
  - Depressed level of consciousness [Unknown]
  - Hypersomnia [Unknown]
  - Somnolence [Unknown]
  - Blood pressure decreased [Unknown]
